FAERS Safety Report 5612006-5 (Version None)
Quarter: 2008Q1

REPORT INFORMATION
  Report Type: 
  Country: None (occurrence: None)
  Receive Date: 20080129
  Receipt Date: 20080129
  Transmission Date: 20080703
  Serious: No
  Sender: FDA-Public Use
  Company Number: None

PATIENT
  Sex: Female
  Weight: 71.6683 kg

DRUGS (5)
  1. ZOFRAN [Suspect]
     Indication: NAUSEA
     Dosage: 4 MG BID PO
     Route: 048
     Dates: start: 20071227
  2. ZOFRAN [Suspect]
     Indication: NEOPLASM MALIGNANT
     Dosage: 4 MG BID PO
     Route: 048
     Dates: start: 20071227
  3. ZOFRAN [Suspect]
     Indication: RADIOTHERAPY
     Dosage: 4 MG BID PO
     Route: 048
     Dates: start: 20071227
  4. PHENERGAN HCL [Suspect]
     Dosage: 25 MG (1/2 - 1) Q 4-6 HRS PO PRN
     Route: 048
     Dates: start: 20071227
  5. RADIOTHERAPY [Concomitant]

REACTIONS (1)
  - DRUG INEFFECTIVE [None]
